FAERS Safety Report 8873008 (Version 1)
Quarter: 2012Q4

REPORT INFORMATION
  Report Type: 
  Country: FR (occurrence: FR)
  Receive Date: 20121029
  Receipt Date: 20121029
  Transmission Date: 20130627
  Serious: Yes (Hospitalization, Other)
  Sender: FDA-Public Use
  Company Number: FR-AMGEN-FRASP2012067452

PATIENT
  Age: 79 Year
  Sex: Female

DRUGS (4)
  1. ENBREL [Suspect]
     Indication: RHEUMATOID ARTHRITIS
     Dosage: 50 mg, qwk
     Dates: start: 2009
  2. NOVATREX /00113801/ [Concomitant]
     Indication: RHEUMATOID ARTHRITIS
     Dosage: 5 mg, qwk
  3. FUROSEMIDE [Concomitant]
     Dosage: 20 mg, qd
  4. APROVEL [Concomitant]
     Dosage: 300 mg, qd

REACTIONS (4)
  - Myocardial infarction [Not Recovered/Not Resolved]
  - Hypertension [Recovered/Resolved]
  - Fall [Unknown]
  - Joint dislocation [Unknown]
